FAERS Safety Report 13793560 (Version 1)
Quarter: 2017Q3

REPORT INFORMATION
  Report Type: Spontaneous
  Country: US (occurrence: US)
  Receive Date: 20170726
  Receipt Date: 20170726
  Transmission Date: 20171127
  Serious: No
  Sender: FDA-Public Use
  Company Number: US-BAYER-2017-141736

PATIENT
  Age: 78 Year
  Sex: Male
  Weight: 97.05 kg

DRUGS (2)
  1. SUTENT [Concomitant]
     Active Substance: SUNITINIB MALATE
     Indication: RENAL CELL CARCINOMA
     Dosage: 50 MG, UNK
     Dates: start: 2012
  2. ALEVE [Suspect]
     Active Substance: NAPROXEN SODIUM
     Indication: SOMNOLENCE
     Dosage: UNK

REACTIONS (2)
  - Product use in unapproved indication [Unknown]
  - Intentional product misuse [Unknown]
